FAERS Safety Report 5490410-6 (Version None)
Quarter: 2007Q4

REPORT INFORMATION
  Report Type: 
  Country: None (occurrence: None)
  Receive Date: 20071019
  Receipt Date: 20071011
  Transmission Date: 20080405
  Serious: Yes (Other)
  Sender: FDA-Public Use
  Company Number: PHBS2007BE17019

PATIENT
  Sex: Female

DRUGS (2)
  1. ZOMETA [Suspect]
     Indication: METASTASES TO BONE
  2. ANTINEOPLASTIC AGENTS [Concomitant]

REACTIONS (2)
  - OSTEONECROSIS [None]
  - TOOTH LOSS [None]
